FAERS Safety Report 7758429-X (Version None)
Quarter: 2011Q3

REPORT INFORMATION
  Report Type: 
  Country: None (occurrence: None)
  Receive Date: 20110919
  Receipt Date: 20110908
  Transmission Date: 20111222
  Serious: Yes (Hospitalization)
  Sender: FDA-Public Use
  Company Number: JP-GENZYME-THYM-1002757

PATIENT
  Sex: Female
  Weight: 53 kg

DRUGS (10)
  1. THYMOGLOBULIN [Suspect]
     Dosage: 192.5 MG, QD
     Route: 042
     Dates: start: 20100714, end: 20100714
  2. METHYLPREDNISOLONE SODIUM SUCCINATE [Concomitant]
     Indication: PREMEDICATION
     Dosage: UNK
     Dates: start: 20100713, end: 20100723
  3. PREDNISOLONE [Concomitant]
     Indication: PREMEDICATION
     Dosage: UNK
     Dates: start: 20100724, end: 20100804
  4. FAMOTIDINE [Concomitant]
     Indication: PROPHYLAXIS
     Dosage: UNK
     Dates: start: 20100717
  5. CEFEPIME HYDROCHLORIDE [Concomitant]
     Indication: INFECTION PROPHYLAXIS
     Dosage: UNK
     Dates: start: 20100830, end: 20100901
  6. THYMOGLOBULIN [Suspect]
     Indication: APLASTIC ANAEMIA
     Dosage: 2.5 MG, QD
     Route: 042
     Dates: start: 20100713, end: 20100713
  7. THYMOGLOBULIN [Suspect]
     Dosage: 195 MG, QD
     Route: 042
     Dates: start: 20100715, end: 20100718
  8. CYCLOSPORINE [Concomitant]
     Indication: APLASTIC ANAEMIA
     Dosage: UNK
     Dates: start: 20100624
  9. FILGRASTIM [Concomitant]
     Indication: APLASTIC ANAEMIA
     Dosage: UNK
     Dates: start: 20100716, end: 20100808
  10. MEROPENEM [Concomitant]
     Indication: INFECTION PROPHYLAXIS
     Dosage: UNK
     Dates: start: 20100901, end: 20100905

REACTIONS (2)
  - FEBRILE NEUTROPENIA [None]
  - PYREXIA [None]
